FAERS Safety Report 7507185-9 (Version None)
Quarter: 2011Q2

REPORT INFORMATION
  Report Type: 
  Country: None (occurrence: None)
  Receive Date: 20110526
  Receipt Date: 20110513
  Transmission Date: 20111010
  Serious: Yes (Other)
  Sender: FDA-Public Use
  Company Number: DE-WATSON-2011-07059

PATIENT
  Sex: Female
  Weight: 49 kg

DRUGS (3)
  1. FOLIC ACID [Concomitant]
     Indication: PROPHYLAXIS OF NEURAL TUBE DEFECT
     Dosage: 0.4 MG, DAILY
     Route: 048
  2. LAMOTRIGINE [Suspect]
     Indication: BORDERLINE PERSONALITY DISORDER
     Dosage: 150 MG, DAILY
     Route: 048
  3. FLUOXETINE [Suspect]
     Indication: OBSESSIVE-COMPULSIVE DISORDER
     Dosage: 30 MG, DAILY
     Route: 048

REACTIONS (1)
  - ABORTION MISSED [None]
